FAERS Safety Report 13401650 (Version 1)
Quarter: 2017Q2

REPORT INFORMATION
  Report Type: Spontaneous
  Country: CA (occurrence: CA)
  Receive Date: 20170404
  Receipt Date: 20170404
  Transmission Date: 20170830
  Serious: Yes (Other)
  Sender: FDA-Public Use
  Company Number: CA-INDIVIOR LIMITED-INDV-100112-2017

PATIENT
  Sex: Male

DRUGS (1)
  1. SUBOXONE [Suspect]
     Active Substance: BUPRENORPHINE HYDROCHLORIDE\NALOXONE HYDROCHLORIDE
     Indication: TOOTHACHE
     Dosage: TOOK HALF OF AN 8MG TABLET
     Route: 065

REACTIONS (8)
  - Dysarthria [Unknown]
  - Substance use disorder [Unknown]
  - Vomiting [Unknown]
  - Malaise [Unknown]
  - Dyspnoea [Unknown]
  - Therapy naive [Unknown]
  - Product preparation error [Unknown]
  - Dizziness [Unknown]
